FAERS Safety Report 7678450-X (Version None)
Quarter: 2011Q3

REPORT INFORMATION
  Report Type: 
  Country: None (occurrence: None)
  Receive Date: 20110811
  Receipt Date: 20110803
  Transmission Date: 20111222
  Serious: Yes (Other)
  Sender: FDA-Public Use
  Company Number: US-BAYER-2011-069603

PATIENT
  Sex: Female

DRUGS (1)
  1. MIRENA [Suspect]
     Indication: CONTRACEPTION
     Dosage: UNK
     Route: 015
     Dates: start: 20080201

REACTIONS (5)
  - BACK PAIN [None]
  - LOSS OF LIBIDO [None]
  - DYSPAREUNIA [None]
  - DEVICE DISLOCATION [None]
  - IRRITABILITY [None]
